FAERS Safety Report 17656608 (Version 1)
Quarter: 2020Q2

REPORT INFORMATION
  Report Type: Spontaneous
  Country: US (occurrence: US)
  Receive Date: 20200410
  Receipt Date: 20200410
  Transmission Date: 20200713
  Serious: Yes (Other)
  Sender: FDA-Public Use
  Company Number: US-COVIS PHARMA B.V.-2020COV00145

PATIENT
  Sex: Female

DRUGS (3)
  1. ALVESCO [Suspect]
     Active Substance: CICLESONIDE
     Dosage: UNK, AS NEEDED
  2. ALVESCO [Suspect]
     Active Substance: CICLESONIDE
     Indication: ASTHMA
     Dosage: UNK, 2X/DAY
  3. VENTOLIN [Suspect]
     Active Substance: ALBUTEROL SULFATE
     Indication: ASTHMA
     Dosage: UNK, AS NEEDED

REACTIONS (6)
  - Pneumonia bacterial [Recovered/Resolved]
  - Viral infection [Recovered/Resolved]
  - Influenza [Recovered/Resolved]
  - Pneumonia [Recovered/Resolved]
  - Bronchitis [Recovered/Resolved]
  - Palpitations [Unknown]
